FAERS Safety Report 9878774 (Version 1)
Quarter: 2014Q1

REPORT INFORMATION
  Report Type: Spontaneous
  Country: US (occurrence: US)
  Receive Date: 20140206
  Receipt Date: 20140206
  Transmission Date: 20141002
  Serious: Yes (Other)
  Sender: FDA-Public Use
  Company Number: US-GLAXOSMITHKLINE-A1059280A

PATIENT
  Age: 54 Year
  Sex: Female

DRUGS (5)
  1. ADVAIR [Suspect]
     Indication: ASTHMA
     Dosage: 1PUFF TWICE PER DAY
     Route: 055
  2. VENTOLIN [Suspect]
     Indication: ASTHMA
     Route: 055
  3. ALBUTEROL [Suspect]
     Indication: PRODUCT USED FOR UNKNOWN INDICATION
     Route: 055
  4. LUMIGAN [Concomitant]
  5. ASPIRIN [Concomitant]

REACTIONS (5)
  - Nasopharyngitis [Recovered/Resolved]
  - Lower respiratory tract infection [Recovered/Resolved]
  - Pneumonia [Recovered/Resolved]
  - Wheezing [Recovered/Resolved]
  - Throat irritation [Unknown]
